FAERS Safety Report 7044675-X (Version None)
Quarter: 2010Q4

REPORT INFORMATION
  Report Type: 
  Country: None (occurrence: None)
  Receive Date: 20101014
  Receipt Date: 20101011
  Transmission Date: 20110411
  Serious: Yes (Disabling)
  Sender: FDA-Public Use
  Company Number: DK-BRACCO-000015

PATIENT
  Sex: Male

DRUGS (12)
  1. CONTRAST MEDIA [Suspect]
     Indication: NEPHRECTOMY
     Route: 042
     Dates: start: 20010106, end: 20010106
  2. CONTRAST MEDIA [Suspect]
     Indication: NUCLEAR MAGNETIC RESONANCE IMAGING
     Route: 042
     Dates: start: 20010106, end: 20010106
  3. OMNISCAN [Suspect]
     Indication: SCAN WITH CONTRAST
     Route: 042
     Dates: start: 20021203, end: 20021203
  4. OMNISCAN [Suspect]
     Route: 042
     Dates: start: 20000905, end: 20000905
  5. REMERON [Concomitant]
  6. HALOPERIDOL [Concomitant]
  7. VITAMIN TAB [Concomitant]
  8. NEORECORMON [Concomitant]
  9. LACTULOSE [Concomitant]
  10. HALOPERIDOL [Concomitant]
  11. QUININE [Concomitant]
  12. METOCLOPRAMIDE [Concomitant]

REACTIONS (1)
  - NEPHROGENIC SYSTEMIC FIBROSIS [None]
